FAERS Safety Report 20211869 (Version 1)
Quarter: 2021Q4

REPORT INFORMATION
  Report Type: Spontaneous
  Country: US (occurrence: None)
  Receive Date: 20211221
  Receipt Date: 20211221
  Transmission Date: 20220303
  Serious: Yes (Other)
  Sender: FDA-Public Use
  Company Number: None

PATIENT
  Age: 49 Year
  Sex: Female
  Weight: 130.05 kg

DRUGS (1)
  1. ICY HOT [Suspect]
     Active Substance: MENTHOL\METHYL SALICYLATE
     Indication: Pain in extremity
     Dosage: OTHER QUANTITY : 2.5 OUNCE(S);?FREQUENCY : AT BEDTIME;?
     Route: 061
     Dates: start: 20211217, end: 20211220

REACTIONS (6)
  - Application site pruritus [None]
  - Application site erythema [None]
  - Skin exfoliation [None]
  - Application site dryness [None]
  - Application site irritation [None]
  - Application site pain [None]

NARRATIVE: CASE EVENT DATE: 20211217
